FAERS Safety Report 13913014 (Version 1)
Quarter: 2017Q3

REPORT INFORMATION
  Report Type: Spontaneous
  Country: JP (occurrence: JP)
  Receive Date: 20170828
  Receipt Date: 20170828
  Transmission Date: 20171127
  Serious: Yes (Death, Other)
  Sender: FDA-Public Use
  Company Number: PHHY2017JP125710

PATIENT
  Age: 38 Year
  Sex: Male

DRUGS (1)
  1. PAZOPANIB [Suspect]
     Active Substance: PAZOPANIB
     Indication: LEIOMYOSARCOMA METASTATIC
     Route: 065

REACTIONS (7)
  - Pyrexia [Unknown]
  - Hypersensitivity [Unknown]
  - Aneurysm ruptured [Fatal]
  - Metastases to heart [Unknown]
  - Rash [Unknown]
  - Pulmonary artery aneurysm [Fatal]
  - Malignant neoplasm progression [Unknown]
